FAERS Safety Report 23843860 (Version 1)
Quarter: 2024Q2

REPORT INFORMATION
  Report Type: Spontaneous
  Country: AU (occurrence: AU)
  Receive Date: 20240510
  Receipt Date: 20240510
  Transmission Date: 20240716
  Serious: Yes (Other)
  Sender: FDA-Public Use
  Company Number: AU-MLMSERVICE-20240426-PI039637-00270-1

PATIENT
  Age: 7 Decade
  Sex: Male

DRUGS (1)
  1. PREDNISOLONE [Suspect]
     Active Substance: PREDNISOLONE
     Indication: Neurosarcoidosis
     Dosage: HIGH DOSE
     Route: 065

REACTIONS (2)
  - Endophthalmitis [Recovering/Resolving]
  - Nocardiosis [Recovering/Resolving]
